FAERS Safety Report 13641585 (Version 1)
Quarter: 2017Q2

REPORT INFORMATION
  Report Type: Spontaneous
  Country: US (occurrence: US)
  Receive Date: 20170609
  Receipt Date: 20170609
  Transmission Date: 20170830
  Serious: Yes (Hospitalization)
  Sender: FDA-Public Use
  Company Number: None

PATIENT
  Sex: Male
  Weight: 114.1 kg

DRUGS (14)
  1. CEFAZOLIN [Concomitant]
     Active Substance: CEFAZOLIN
  2. ADVAIR DISKUS [Concomitant]
     Active Substance: FLUTICASONE PROPIONATE\SALMETEROL XINAFOATE
  3. PRADAXA [Concomitant]
     Active Substance: DABIGATRAN ETEXILATE MESYLATE
  4. TIOTROPIUM [Concomitant]
     Active Substance: TIOTROPIUM
  5. PROPRANOLOL [Concomitant]
     Active Substance: PROPRANOLOL HYDROCHLORIDE
  6. GLIMEPIRIDE. [Concomitant]
     Active Substance: GLIMEPIRIDE
  7. ALBUTEROL. [Concomitant]
     Active Substance: ALBUTEROL
  8. POTASSIUM CHLORIDE. [Concomitant]
     Active Substance: POTASSIUM CHLORIDE
  9. ALDACTONE [Concomitant]
     Active Substance: SPIRONOLACTONE
  10. PANTOPRAZOLE [Concomitant]
     Active Substance: PANTOPRAZOLE
  11. HARVONI [Suspect]
     Active Substance: LEDIPASVIR\SOFOSBUVIR
     Indication: HEPATITIS C
     Route: 048
     Dates: start: 20170216
  12. RIBAVIRIN 600 MG [Suspect]
     Active Substance: RIBAVIRIN
     Indication: HEPATITIS C
     Route: 048
     Dates: start: 20170216, end: 20170310
  13. PHYTONADIONE. [Concomitant]
     Active Substance: PHYTONADIONE
  14. JANUVIA [Concomitant]
     Active Substance: SITAGLIPTIN PHOSPHATE

REACTIONS (10)
  - Abdominal pain [None]
  - Ascites [None]
  - Hepatic cirrhosis [None]
  - Dehydration [None]
  - Gait disturbance [None]
  - Abdominal discomfort [None]
  - Escherichia bacteraemia [None]
  - Dyspnoea [None]
  - Muscular weakness [None]
  - Rash [None]

NARRATIVE: CASE EVENT DATE: 20170423
